FAERS Safety Report 5500080-6 (Version None)
Quarter: 2007Q4

REPORT INFORMATION
  Report Type: 
  Country: None (occurrence: None)
  Receive Date: 20071024
  Receipt Date: 20071017
  Transmission Date: 20080405
  Serious: Yes (Hospitalization)
  Sender: FDA-Public Use
  Company Number: 2007BI022195

PATIENT
  Age: 34 Year
  Sex: Female
  Weight: 78 kg

DRUGS (1)
  1. NATALIZUMAB (NATALIZUMAB) [Suspect]
     Indication: MULTIPLE SCLEROSIS
     Dosage: 300 MG; QM; IV
     Route: 042
     Dates: start: 20070822, end: 20070917

REACTIONS (6)
  - ABDOMINAL PAIN [None]
  - CHEST PAIN [None]
  - FEELING HOT [None]
  - HYPOGLYCAEMIA [None]
  - NAUSEA [None]
  - NERVOUSNESS [None]
